FAERS Safety Report 5993073-6 (Version None)
Quarter: 2008Q4

REPORT INFORMATION
  Report Type: 
  Country: None (occurrence: None)
  Receive Date: 20081212
  Receipt Date: 20081209
  Transmission Date: 20090506
  Serious: Yes (Hospitalization)
  Sender: FDA-Public Use
  Company Number: DE-BRISTOL-MYERS SQUIBB COMPANY-14168686

PATIENT
  Age: 61 Year
  Sex: Male
  Weight: 65 kg

DRUGS (3)
  1. CISPLATIN [Suspect]
     Indication: NON-SMALL CELL LUNG CANCER
     Dosage: FREQUENCY: DAY 1
     Route: 042
     Dates: start: 20080403
  2. SU-011,248 [Suspect]
     Indication: NON-SMALL CELL LUNG CANCER
     Dosage: FREQUENCY: DAY 1 - 21
     Route: 048
     Dates: start: 20080405
  3. GEMCITABINE HCL [Suspect]
     Indication: NON-SMALL CELL LUNG CANCER
     Dosage: FREQUENCY: DAY 1 AND 8
     Route: 042
     Dates: start: 20080403

REACTIONS (2)
  - GENERAL PHYSICAL HEALTH DETERIORATION [None]
  - PULMONARY EMBOLISM [None]
